FAERS Safety Report 20751346 (Version 2)
Quarter: 2022Q2

REPORT INFORMATION
  Report Type: Spontaneous
  Country: US (occurrence: US)
  Receive Date: 20220426
  Receipt Date: 20220427
  Transmission Date: 20220721
  Serious: No
  Sender: FDA-Public Use
  Company Number: US-PFIZER INC-2021479602

PATIENT
  Age: 47 Year
  Sex: Female
  Weight: 113.4 kg

DRUGS (5)
  1. PRISTIQ EXTENDED-RELEASE [Suspect]
     Active Substance: DESVENLAFAXINE SUCCINATE
     Indication: Bipolar disorder
     Dosage: 200 MG, 1X/DAY (PRISTIQ 100 MG, 2 QAM (EVERY MORNING)
  2. PRISTIQ EXTENDED-RELEASE [Suspect]
     Active Substance: DESVENLAFAXINE SUCCINATE
     Dosage: WENT UP TO 200, BUT ONLY TAKING 100 RIGHT NOW
  3. PRISTIQ EXTENDED-RELEASE [Suspect]
     Active Substance: DESVENLAFAXINE SUCCINATE
     Dosage: 100 MG (QUANTITY FOR 90 DAYS: 180)
  4. PRISTIQ EXTENDED-RELEASE [Suspect]
     Active Substance: DESVENLAFAXINE SUCCINATE
     Dosage: 100 MG, 2X/DAY (DIRECTIONS: TWO IN THE MORNING)
  5. PRISTIQ EXTENDED-RELEASE [Suspect]
     Active Substance: DESVENLAFAXINE SUCCINATE
     Dosage: 200 MG, 1X/DAY (TWO IN THE MORNING)

REACTIONS (8)
  - Intentional product use issue [Unknown]
  - Product dose omission issue [Unknown]
  - Wrong dose [Unknown]
  - Device use issue [Unknown]
  - Depression [Unknown]
  - Somnolence [Unknown]
  - Affective disorder [Unknown]
  - Mental disorder [Unknown]
